FAERS Safety Report 4909856-7 (Version None)
Quarter: 2006Q1

REPORT INFORMATION
  Report Type: 
  Country: None (occurrence: None)
  Receive Date: 20060208
  Receipt Date: 20060126
  Transmission Date: 20060701
  Serious: Yes (Death)
  Sender: FDA-Public Use
  Company Number: 2006013612

PATIENT
  Age: 50 Year
  Sex: Male

DRUGS (1)
  1. NEURONTIN [Suspect]
     Indication: ANXIETY

REACTIONS (2)
  - COMPLETED SUICIDE [None]
  - DRUG INEFFECTIVE [None]
